FAERS Safety Report 6283572-4 (Version None)
Quarter: 2009Q3

REPORT INFORMATION
  Report Type: 
  Country: None (occurrence: None)
  Receive Date: 20090722
  Receipt Date: 20090722
  Transmission Date: 20100115
  Serious: Yes (Hospitalization)
  Sender: FDA-Public Use
  Company Number: None

PATIENT
  Age: 69 Year
  Sex: Male
  Weight: 76.6579 kg

DRUGS (7)
  1. TEMODAR [Suspect]
     Indication: GLIOBLASTOMA MULTIFORME
     Dosage: 75MG/M2/DAY = 140MG DAILY X 42 DAY
     Dates: start: 20090511, end: 20090621
  2. PACLITAXEL [Suspect]
     Dosage: 50MG/M2 = 85MG WEEKLY X 6
     Dates: start: 20090511
  3. PACLITAXEL [Suspect]
     Dosage: 50MG/M2 = 85MG WEEKLY X 6
     Dates: start: 20090520
  4. PACLITAXEL [Suspect]
     Dosage: 50MG/M2 = 85MG WEEKLY X 6
     Dates: start: 20090527
  5. PACLITAXEL [Suspect]
     Dosage: 50MG/M2 = 85MG WEEKLY X 6
     Dates: start: 20090604
  6. PACLITAXEL [Suspect]
     Dosage: 50MG/M2 = 85MG WEEKLY X 6
     Dates: start: 20090609
  7. PACLITAXEL [Suspect]
     Dosage: 50MG/M2 = 85MG WEEKLY X 6
     Dates: start: 20090617

REACTIONS (3)
  - BLINDNESS [None]
  - HALLUCINATION, OLFACTORY [None]
  - HEADACHE [None]
